FAERS Safety Report 20298551 (Version 1)
Quarter: 2022Q1

REPORT INFORMATION
  Report Type: Spontaneous
  Country: US (occurrence: None)
  Receive Date: 20220104
  Receipt Date: 20220104
  Transmission Date: 20220424
  Serious: Yes (Hospitalization)
  Sender: FDA-Public Use
  Company Number: None

PATIENT
  Age: 69 Year
  Sex: Male
  Weight: 89.81 kg

DRUGS (1)
  1. CYCLOBENZAPRINE HYDROCHLORIDE [Suspect]
     Active Substance: CYCLOBENZAPRINE HYDROCHLORIDE
     Indication: Pain
     Dates: start: 20190920, end: 20201119

REACTIONS (5)
  - Mental status changes [None]
  - Acute kidney injury [None]
  - Encephalopathy [None]
  - Hallucinations, mixed [None]
  - Drug hypersensitivity [None]

NARRATIVE: CASE EVENT DATE: 20201102
